FAERS Safety Report 24884525 (Version 1)
Quarter: 2025Q1

REPORT INFORMATION
  Report Type: Spontaneous
  Country: US (occurrence: US)
  Receive Date: 20250124
  Receipt Date: 20250124
  Transmission Date: 20250409
  Serious: Yes (Other)
  Sender: COOPERSURGICAL
  Company Number: US-COOPERSURGICAL, INC.-2025CPS000242

PATIENT
  Age: 37 Year
  Sex: Female
  Weight: 88.435 kg

DRUGS (7)
  1. PARAGARD T 380A [Suspect]
     Active Substance: COPPER
     Indication: Contraception
     Route: 015
     Dates: start: 20141027
  2. METHIMAZOLE [Concomitant]
     Active Substance: METHIMAZOLE
     Dates: start: 201210
  3. LEVOTHYROXINE [Concomitant]
     Active Substance: LEVOTHYROXINE
     Dates: start: 201304
  4. OMEPRAZOLE [Concomitant]
     Active Substance: OMEPRAZOLE
     Dates: start: 201312
  5. LIOTHYRONINE [Concomitant]
     Active Substance: LIOTHYRONINE
     Dates: start: 201312
  6. ZOLPIDEM [Concomitant]
     Active Substance: ZOLPIDEM TARTRATE
     Dates: start: 201312
  7. PHENTERMINE [Concomitant]
     Active Substance: PHENTERMINE
     Dates: start: 201311

REACTIONS (7)
  - Vulvovaginal injury [Unknown]
  - Device breakage [Recovered/Resolved]
  - Foreign body in reproductive tract [Recovered/Resolved]
  - Complication of device removal [Recovered/Resolved]
  - Emotional distress [Not Recovered/Not Resolved]
  - Discomfort [Unknown]
  - Dyspareunia [Unknown]

NARRATIVE: CASE EVENT DATE: 20190901
